FAERS Safety Report 4505499-8 (Version None)
Quarter: 2004Q4

REPORT INFORMATION
  Report Type: 
  Country: None (occurrence: None)
  Receive Date: 20041119
  Receipt Date: 20040205
  Transmission Date: 20050328
  Serious: Yes (Death)
  Sender: FDA-Public Use
  Company Number: GB-ROCHE-358047

PATIENT
  Age: 22 Year
  Sex: Male
  Weight: 73 kg

DRUGS (1)
  1. ROACCUTANE [Suspect]
     Indication: ACNE
     Route: 048
     Dates: start: 20031212, end: 20040108

REACTIONS (9)
  - ABNORMAL BEHAVIOUR [None]
  - ASOCIAL BEHAVIOUR [None]
  - BLOOD ALBUMIN INCREASED [None]
  - COMPLETED SUICIDE [None]
  - DEPRESSION [None]
  - FATIGUE [None]
  - INJURY ASPHYXIATION [None]
  - SOCIAL AVOIDANT BEHAVIOUR [None]
  - STRESS SYMPTOMS [None]
